FAERS Safety Report 7884013-3 (Version None)
Quarter: 2011Q4

REPORT INFORMATION
  Report Type: 
  Country: None (occurrence: None)
  Receive Date: 20111102
  Receipt Date: 20111027
  Transmission Date: 20120403
  Serious: Yes (Life-Threatening, Other)
  Sender: FDA-Public Use
  Company Number: PHHY2011BE95054

PATIENT
  Age: 20 Year
  Sex: Male

DRUGS (4)
  1. BASILIXIMAB [Suspect]
     Indication: RENAL TRANSPLANT
     Dosage: 20 MG, UNK
     Route: 042
  2. METHYLPREDNISOLONE [Concomitant]
  3. MYCOPHENOLATE MOFETIL [Concomitant]
  4. FLUCONAZOLE [Concomitant]

REACTIONS (7)
  - DISTRIBUTIVE SHOCK [None]
  - RENAL GRAFT LOSS [None]
  - ACUTE RESPIRATORY DISTRESS SYNDROME [None]
  - CARDIAC ARREST [None]
  - RENAL CORTICAL NECROSIS [None]
  - MULTI-ORGAN FAILURE [None]
  - COR PULMONALE ACUTE [None]
